FAERS Safety Report 19513086 (Version 1)
Quarter: 2021Q3

REPORT INFORMATION
  Report Type: Spontaneous
  Country: US (occurrence: US)
  Receive Date: 20210709
  Receipt Date: 20210709
  Transmission Date: 20211014
  Serious: Yes (Hospitalization)
  Sender: FDA-Public Use
  Company Number: US-SAOL THERAPEUTICS-2021SAO00233

PATIENT
  Age: 12 Year
  Sex: Male

DRUGS (3)
  1. BACLOFEN. [Suspect]
     Active Substance: BACLOFEN
     Dosage: 746.1 ?G, 1X/DAY (TOTAL)
     Route: 037
  2. BACLOFEN. [Suspect]
     Active Substance: BACLOFEN
     Dosage: UNK
     Route: 037
  3. BACLOFEN. [Suspect]
     Active Substance: BACLOFEN
     Dosage: 12000 ?G, ONCE
     Route: 037

REACTIONS (6)
  - Mental status changes [Recovered/Resolved]
  - Areflexia [Recovered/Resolved]
  - Seizure [Recovered/Resolved]
  - Overdose [Recovered/Resolved]
  - Coma [Recovered/Resolved]
  - Toxicity to various agents [Recovered/Resolved]
